FAERS Safety Report 9857061 (Version 1)
Quarter: 2014Q1

REPORT INFORMATION
  Report Type: Spontaneous
  Country: US (occurrence: US)
  Receive Date: 20140130
  Receipt Date: 20140130
  Transmission Date: 20141002
  Serious: No
  Sender: FDA-Public Use
  Company Number: US-B.I. PHARMACEUTICALS,INC./RIDGEFIELD-2014-BI-03080BP

PATIENT
  Age: 55 Year
  Sex: Male

DRUGS (6)
  1. TRADJENTA [Suspect]
     Indication: TYPE 2 DIABETES MELLITUS
     Dosage: 5 MG
     Route: 048
     Dates: start: 201304, end: 201401
  2. LISINOPRIL [Concomitant]
     Dosage: 20 MG
     Route: 048
  3. SIMVASTATIN [Concomitant]
     Dosage: 20 MG
     Route: 048
  4. GLIPERIDE [Concomitant]
     Dosage: 2 MG
     Route: 048
  5. ASPIRIN [Concomitant]
     Dosage: 81 MG
     Route: 048
  6. LEVEMIR [Concomitant]
     Dosage: 36 U
     Route: 058

REACTIONS (1)
  - Lipase increased [Not Recovered/Not Resolved]
